FAERS Safety Report 22096036 (Version 1)
Quarter: 2023Q1

REPORT INFORMATION
  Report Type: Spontaneous
  Country: US (occurrence: US)
  Receive Date: 20230315
  Receipt Date: 20230315
  Transmission Date: 20230418
  Serious: Yes (Hospitalization, Other)
  Sender: FDA-Public Use
  Company Number: US-BAXTER-2023BAX014986

PATIENT

DRUGS (9)
  1. IFOSFAMIDE [Suspect]
     Active Substance: IFOSFAMIDE
     Indication: Chemotherapy
     Dosage: UNK
     Route: 065
  2. ETOPOSIDE [Suspect]
     Active Substance: ETOPOSIDE
     Indication: Chemotherapy
     Dosage: UNK
     Route: 065
  3. ETOPOSIDE [Suspect]
     Active Substance: ETOPOSIDE
     Dosage: UNK
     Route: 065
     Dates: start: 20191229
  4. MESNA [Suspect]
     Active Substance: MESNA
     Dosage: UNK
     Route: 065
     Dates: start: 20191229
  5. CEFADROXIL [Suspect]
     Active Substance: CEFADROXIL
     Dosage: UNK
     Route: 065
     Dates: start: 20191105
  6. FENTANYL [Concomitant]
     Active Substance: FENTANYL
     Dosage: UNK
     Route: 065
     Dates: start: 20191105
  7. ENOXAPARIN [Concomitant]
     Active Substance: ENOXAPARIN
     Dosage: UNK
     Route: 065
     Dates: start: 20191106, end: 20191110
  8. MORPHINE [Concomitant]
     Active Substance: MORPHINE
     Dosage: UNK
     Route: 065
     Dates: start: 20191105
  9. MORPHINE [Concomitant]
     Active Substance: MORPHINE
     Dosage: UNK
     Route: 040

REACTIONS (7)
  - Febrile neutropenia [Recovered/Resolved]
  - Bacteraemia [Recovered/Resolved]
  - Platelet count decreased [Recovered/Resolved]
  - Clostridium difficile infection [Unknown]
  - Serratia infection [Unknown]
  - Pseudomonas infection [Unknown]
  - Enterocolitis infectious [Unknown]

NARRATIVE: CASE EVENT DATE: 20191222
